FAERS Safety Report 25799860 (Version 2)
Quarter: 2025Q4

REPORT INFORMATION
  Report Type: Spontaneous
  Country: US (occurrence: US)
  Receive Date: 20250914
  Receipt Date: 20251130
  Transmission Date: 20260118
  Serious: No
  Sender: SANOFI AVENTIS
  Company Number: US-SA-2025SA268469

PATIENT
  Age: 41 Year
  Sex: Male
  Weight: 104.55 kg

DRUGS (6)
  1. FABRAZYME [Suspect]
     Active Substance: AGALSIDASE BETA
     Indication: Fabry^s disease
     Dosage: 90 MG, QOW
     Route: 042
     Dates: start: 20160912
  2. FABRAZYME [Suspect]
     Active Substance: AGALSIDASE BETA
     Dosage: 120 MG, QOW
     Route: 042
     Dates: start: 2025
  3. LOSARTAN [Suspect]
     Active Substance: LOSARTAN
     Route: 065
  4. SODIUM CHLORIDE [Concomitant]
     Active Substance: SODIUM CHLORIDE
  5. SODIUM CHLORIDE [Concomitant]
     Active Substance: SODIUM CHLORIDE
  6. STERILE WATER [Concomitant]
     Active Substance: WATER

REACTIONS (5)
  - Lysosomal storage disorder [Unknown]
  - Condition aggravated [Unknown]
  - Chest pain [Unknown]
  - Drug ineffective [Unknown]
  - Off label use [Unknown]

NARRATIVE: CASE EVENT DATE: 20250101
